FAERS Safety Report 15604981 (Version 4)
Quarter: 2019Q1

REPORT INFORMATION
  Report Type: Report from Study
  Country: None (occurrence: CO)
  Receive Date: 20181112
  Receipt Date: 20190218
  Transmission Date: 20190417
  Serious: Yes (Hospitalization, Disabling, Other)
  Sender: FDA-Public Use
  Company Number: CO-ABBVIE-18K-036-2528358-00

PATIENT
  Age: 52 Year
  Sex: Female
  Weight: 90 kg

DRUGS (2)
  1. HUMIRA [Suspect]
     Active Substance: ADALIMUMAB
     Route: 058
     Dates: start: 2018
  2. HUMIRA [Suspect]
     Active Substance: ADALIMUMAB
     Indication: HIDRADENITIS
     Route: 058
     Dates: start: 20161026, end: 20180830

REACTIONS (10)
  - Transaminases increased [Unknown]
  - Psoriasis [Unknown]
  - Hepatitis viral [Unknown]
  - Influenza [Recovered/Resolved]
  - Muscle mass [Recovering/Resolving]
  - Leiomyoma [Unknown]
  - Haemorrhage [Unknown]
  - Post procedural complication [Unknown]
  - Overweight [Unknown]
  - Influenza [Unknown]

NARRATIVE: CASE EVENT DATE: 201811
